FAERS Safety Report 9899674 (Version 2)
Quarter: 2014Q1

REPORT INFORMATION
  Report Type: Spontaneous
  Country: US (occurrence: US)
  Receive Date: 20140214
  Receipt Date: 20140214
  Transmission Date: 20141002
  Serious: No
  Sender: FDA-Public Use
  Company Number: US-GILEAD-2011-0043192

PATIENT
  Sex: Female

DRUGS (12)
  1. LETAIRIS [Suspect]
     Indication: PULMONARY HYPERTENSION
     Route: 048
     Dates: start: 20110802
  2. LETAIRIS [Suspect]
     Indication: CONNECTIVE TISSUE DISORDER
  3. HUMIRA [Concomitant]
  4. SYNTHROID [Concomitant]
  5. ALTACE [Concomitant]
  6. LIPITOR [Concomitant]
  7. BUSPAR [Concomitant]
  8. ZOLOFT [Concomitant]
  9. SYMBICORT [Concomitant]
  10. ALBUTEROL                          /00139501/ [Concomitant]
  11. PREDNISONE [Concomitant]
  12. PRED FORTE [Concomitant]

REACTIONS (7)
  - Hypotension [Recovered/Resolved]
  - Asthenia [Recovered/Resolved]
  - Syncope [Recovered/Resolved]
  - Fall [Recovered/Resolved]
  - Dehydration [Recovered/Resolved]
  - Flushing [Recovered/Resolved]
  - Oedema [Recovered/Resolved]
